FAERS Safety Report 18659580 (Version 1)
Quarter: 2020Q4

REPORT INFORMATION
  Report Type: Spontaneous
  Country: US (occurrence: US)
  Receive Date: 20201223
  Receipt Date: 20201223
  Transmission Date: 20210114
  Serious: Yes (Disabling, Other)
  Sender: FDA-Public Use
  Company Number: US-PURDUE-USA-2020-0181976

PATIENT
  Sex: Female

DRUGS (1)
  1. OXYCONTIN [Suspect]
     Active Substance: OXYCODONE HYDROCHLORIDE
     Indication: PRODUCT USED FOR UNKNOWN INDICATION
     Dosage: UNKNOWN
     Route: 048

REACTIONS (9)
  - Memory impairment [Unknown]
  - Mental disorder [Unknown]
  - Developmental delay [Unknown]
  - Behaviour disorder [Unknown]
  - Unevaluable event [Unknown]
  - Drug withdrawal syndrome neonatal [Unknown]
  - Motor dysfunction [Unknown]
  - Foetal exposure during pregnancy [Unknown]
  - Learning disability [Unknown]
